FAERS Safety Report 11587720 (Version 2)
Quarter: 2015Q4

REPORT INFORMATION
  Report Type: Spontaneous
  Country: US (occurrence: US)
  Receive Date: 20151001
  Receipt Date: 20151218
  Transmission Date: 20160304
  Serious: No
  Sender: FDA-Public Use
  Company Number: US-GLAXOSMITHKLINE-US2015GSK113164

PATIENT
  Sex: Female

DRUGS (4)
  1. CARVEDILOL PHOSPHATE. [Suspect]
     Active Substance: CARVEDILOL PHOSPHATE
     Indication: CARDIAC VALVE DISEASE
  2. COREG [Concomitant]
     Active Substance: CARVEDILOL
     Dosage: UNK
  3. CARVEDILOL PHOSPHATE. [Suspect]
     Active Substance: CARVEDILOL PHOSPHATE
     Indication: CARDIOVASCULAR DISORDER
     Dosage: 25 MG, U
     Dates: start: 201407
  4. COREG [Concomitant]
     Active Substance: CARVEDILOL
     Indication: CARDIOVASCULAR DISORDER
     Dosage: UNK
     Dates: start: 2000

REACTIONS (6)
  - Drug effect incomplete [Unknown]
  - Impaired driving ability [Unknown]
  - Adverse drug reaction [Unknown]
  - Hypersensitivity [Unknown]
  - Varicella [Recovering/Resolving]
  - Dizziness [Unknown]
